FAERS Safety Report 14263679 (Version 1)
Quarter: 2017Q4

REPORT INFORMATION
  Report Type: Report from Study
  Country: FR (occurrence: FR)
  Receive Date: 20171208
  Receipt Date: 20171208
  Transmission Date: 20180321
  Serious: Yes (Hospitalization, Other)
  Sender: FDA-Public Use
  Company Number: FR-JAZZ-2014-FR-010152

PATIENT
  Age: 77 Year
  Sex: Female
  Weight: 62 kg

DRUGS (5)
  1. STRESAM [Concomitant]
     Active Substance: ETIFOXINE
     Indication: PRODUCT USED FOR UNKNOWN INDICATION
  2. XYREM [Suspect]
     Active Substance: SODIUM OXYBATE
     Indication: NARCOLEPSY
     Dosage: 3.5 G, BID
     Route: 048
     Dates: start: 20071214, end: 201407
  3. FLUOXETINE [Concomitant]
     Active Substance: FLUOXETINE HYDROCHLORIDE
     Indication: PRODUCT USED FOR UNKNOWN INDICATION
  4. XYREM [Suspect]
     Active Substance: SODIUM OXYBATE
     Indication: CATAPLEXY
     Dosage: 3.5 G, BID
     Route: 048
     Dates: start: 20140723
  5. MODIODAL [Concomitant]
     Active Substance: MODAFINIL
     Indication: PRODUCT USED FOR UNKNOWN INDICATION

REACTIONS (2)
  - Fall [Recovered/Resolved with Sequelae]
  - Upper limb fracture [Unknown]

NARRATIVE: CASE EVENT DATE: 20140715
